FAERS Safety Report 17017049 (Version 1)
Quarter: 2019Q4

REPORT INFORMATION
  Report Type: Spontaneous
  Country: US (occurrence: US)
  Receive Date: 20191004
  Receipt Date: 20191004
  Transmission Date: 20200122
  Serious: Yes (Hospitalization)
  Sender: FDA-Public Use
  Company Number: None

PATIENT
  Age: 76 Year
  Sex: Female

DRUGS (7)
  1. EFFEXER [Concomitant]
  2. CELEBREX [Concomitant]
     Active Substance: CELECOXIB
  3. ENBREL [Suspect]
     Active Substance: ETANERCEPT
     Indication: RHEUMATOID ARTHRITIS
     Route: 065
     Dates: start: 20170420
  4. LYRICA [Concomitant]
     Active Substance: PREGABALIN
  5. METHOTREXATE. [Concomitant]
     Active Substance: METHOTREXATE
  6. AMBIEN [Concomitant]
     Active Substance: ZOLPIDEM TARTRATE
  7. LIPITOR [Concomitant]
     Active Substance: ATORVASTATIN CALCIUM

REACTIONS (1)
  - Surgery [None]

NARRATIVE: CASE EVENT DATE: 20190927
